FAERS Safety Report 21936155 (Version 4)
Quarter: 2023Q4

REPORT INFORMATION
  Report Type: Spontaneous
  Country: US (occurrence: US)
  Receive Date: 20230201
  Receipt Date: 20231128
  Transmission Date: 20240109
  Serious: Yes (Hospitalization, Other)
  Sender: FDA-Public Use
  Company Number: US-PFIZER INC-PV202300018487

PATIENT
  Age: 78 Year
  Sex: Male
  Weight: 78.005 kg

DRUGS (2)
  1. VYNDAMAX [Suspect]
     Active Substance: TAFAMIDIS
     Indication: Cardiac amyloidosis
     Dosage: 61 MG, 1X/DAY
     Dates: start: 202205
  2. VYNDAMAX [Suspect]
     Active Substance: TAFAMIDIS
     Indication: Enzyme inhibition
     Dosage: 61 MG

REACTIONS (6)
  - Cardiac failure congestive [Not Recovered/Not Resolved]
  - Arrhythmia [Not Recovered/Not Resolved]
  - Chest discomfort [Not Recovered/Not Resolved]
  - Atrial flutter [Not Recovered/Not Resolved]
  - Angina pectoris [Unknown]
  - Therapeutic product effect incomplete [Unknown]

NARRATIVE: CASE EVENT DATE: 20220501
